FAERS Safety Report 22896773 (Version 3)
Quarter: 2023Q4

REPORT INFORMATION
  Report Type: Report from Study
  Country: US (occurrence: US)
  Receive Date: 20230901
  Receipt Date: 20231208
  Transmission Date: 20240109
  Serious: No
  Sender: FDA-Public Use
  Company Number: US-002147023-NVSC2023US190233

PATIENT
  Age: 62 Year
  Sex: Female

DRUGS (2)
  1. KESIMPTA [Suspect]
     Active Substance: OFATUMUMAB
     Indication: Relapsing-remitting multiple sclerosis
     Dosage: 0.4 ML (ONCE PER WEEK FOR 3 WEEKS THEN SKIP 1 WEEK AND START WITH MONTHLY INJECTIONS
     Route: 058
     Dates: start: 20230817, end: 20231205
  2. KESIMPTA [Suspect]
     Active Substance: OFATUMUMAB
     Indication: Multiple sclerosis
     Dosage: UNK (2ND DOSE)
     Route: 065

REACTIONS (3)
  - Headache [Recovered/Resolved]
  - COVID-19 [Recovered/Resolved]
  - Vertigo [Recovered/Resolved]

NARRATIVE: CASE EVENT DATE: 20230817
